FAERS Safety Report 18135849 (Version 3)
Quarter: 2022Q2

REPORT INFORMATION
  Report Type: Report from Study
  Country: HN (occurrence: HN)
  Receive Date: 20200811
  Receipt Date: 20220426
  Transmission Date: 20220721
  Serious: Yes (Other)
  Sender: FDA-Public Use
  Company Number: NVSC2020HN218747

PATIENT
  Age: 52 Year
  Sex: Male

DRUGS (3)
  1. HYDROCHLOROTHIAZIDE\VALSARTAN [Suspect]
     Active Substance: HYDROCHLOROTHIAZIDE\VALSARTAN
     Indication: Hypertension
     Dosage: 160/12.5MG, 15 YEARS AGO
     Route: 065
  2. HYDROCHLOROTHIAZIDE\VALSARTAN [Suspect]
     Active Substance: HYDROCHLOROTHIAZIDE\VALSARTAN
     Dosage: 80/12.5MG, 8 YEARS AGO
     Route: 065
  3. HYDROCHLOROTHIAZIDE\VALSARTAN [Suspect]
     Active Substance: HYDROCHLOROTHIAZIDE\VALSARTAN
     Dosage: 160/12.5MG, 1 MONTH AGO
     Route: 065

REACTIONS (9)
  - Diabetes mellitus [Unknown]
  - Hypertension [Unknown]
  - Memory impairment [Unknown]
  - Visual impairment [Unknown]
  - Weight decreased [Unknown]
  - Weight increased [Unknown]
  - Hypotension [Unknown]
  - Obesity [Unknown]
  - Drug ineffective [Unknown]
